FAERS Safety Report 26078296 (Version 2)
Quarter: 2025Q4

REPORT INFORMATION
  Report Type: Report from Study
  Country: US (occurrence: US)
  Receive Date: 20251122
  Receipt Date: 20251215
  Transmission Date: 20260118
  Serious: No
  Sender: BOEHRINGER INGELHEIM
  Company Number: US-Komodo Health-a23aa00000C956QAAR

PATIENT
  Age: 85 Year
  Sex: Male

DRUGS (1)
  1. OFEV [Suspect]
     Active Substance: NINTEDANIB
     Indication: Idiopathic pulmonary fibrosis
     Dates: start: 202510

REACTIONS (3)
  - Vomiting [Recovered/Resolved]
  - Yellow skin [Unknown]
  - Nail discolouration [Unknown]

NARRATIVE: CASE EVENT DATE: 20250101
